FAERS Safety Report 5056146-0 (Version None)
Quarter: 2006Q3

REPORT INFORMATION
  Report Type: 
  Country: None (occurrence: None)
  Receive Date: 20060720
  Receipt Date: 20060630
  Transmission Date: 20061208
  Serious: No
  Sender: FDA-Public Use
  Company Number: JP-JPN-A200602401

PATIENT
  Age: 65 Year
  Sex: Female

DRUGS (12)
  1. PAXIL [Suspect]
     Indication: DEPRESSION
     Dosage: 20MG PER DAY
     Route: 048
     Dates: start: 20060530, end: 20060629
  2. PREDONINE [Concomitant]
     Route: 048
  3. NORVASC [Concomitant]
     Route: 048
  4. ARTIST [Concomitant]
     Route: 048
  5. URALYT [Concomitant]
     Route: 048
  6. ASPIRIN [Concomitant]
     Route: 048
  7. LASIX [Concomitant]
     Route: 065
  8. MEVALOTIN [Concomitant]
     Route: 048
  9. SELBEX [Concomitant]
     Route: 048
  10. DEPAS [Concomitant]
     Route: 048
  11. MEILAX [Concomitant]
     Route: 048
  12. MAGNESIUM OXIDE [Concomitant]
     Route: 048

REACTIONS (3)
  - EPISTAXIS [None]
  - HAEMORRHAGE SUBCUTANEOUS [None]
  - HEPATIC FUNCTION ABNORMAL [None]
